FAERS Safety Report 9592329 (Version 1)
Quarter: 2013Q3

REPORT INFORMATION
  Report Type: Spontaneous
  Country: US (occurrence: None)
  Receive Date: 20130926
  Receipt Date: 20130926
  Transmission Date: 20140515
  Serious: Yes (Other)
  Sender: FDA-Public Use
  Company Number: 2012AP002005

PATIENT
  Age: 76 Year
  Sex: Male

DRUGS (2)
  1. CLOPIDOGREL [Suspect]
     Indication: ANTICOAGULANT THERAPY
     Dosage: 1 TAB; QD; PO
     Route: 048
     Dates: start: 20120617, end: 20120625
  2. CLOPIDOGREL [Concomitant]

REACTIONS (2)
  - Rectal haemorrhage [None]
  - Haematuria [None]
